FAERS Safety Report 19124024 (Version 1)
Quarter: 2021Q2

REPORT INFORMATION
  Report Type: Spontaneous
  Country: MA (occurrence: MA)
  Receive Date: 20210413
  Receipt Date: 20210413
  Transmission Date: 20210717
  Serious: Yes (Other)
  Sender: FDA-Public Use
  Company Number: MA-SUN PHARMACEUTICAL INDUSTRIES LTD-2021RR-290984

PATIENT
  Age: 62 Year
  Sex: Female

DRUGS (14)
  1. ADRENALINE [Suspect]
     Active Substance: EPINEPHRINE
     Indication: HYPOTENSION
     Dosage: 5 MG/H
     Route: 065
  2. HYDROXYCHLOROQUINE [Suspect]
     Active Substance: HYDROXYCHLOROQUINE
     Indication: COVID-19
     Dosage: UNK
     Route: 065
  3. TOCILIZUMAB. [Suspect]
     Active Substance: TOCILIZUMAB
     Indication: PRODUCT USED FOR UNKNOWN INDICATION
     Dosage: UNK
     Route: 065
  4. ASCORBIC ACID. [Suspect]
     Active Substance: ASCORBIC ACID
     Indication: COVID-19
     Dosage: UNK
     Route: 065
  5. ENOXAPARIN SODIUM. [Suspect]
     Active Substance: ENOXAPARIN SODIUM
     Indication: COVID-19
     Dosage: UNK
     Route: 065
  6. ANTI?INTERLEUKIN?6 MONOCLONAL ANTIBODY [TOCILIZUMAB] [Suspect]
     Active Substance: TOCILIZUMAB
     Indication: CYTOKINE STORM
     Dosage: UNK
     Route: 065
  7. NORADRENALINE [Suspect]
     Active Substance: NOREPINEPHRINE
     Indication: BRADYCARDIA
     Dosage: 12 MG/H
     Route: 065
  8. NORADRENALINE [Suspect]
     Active Substance: NOREPINEPHRINE
     Indication: HYPOTENSION
     Dosage: 1 MG/H
     Route: 065
  9. AMIKACIN. [Suspect]
     Active Substance: AMIKACIN
     Indication: PRODUCT USED FOR UNKNOWN INDICATION
     Dosage: UNK
     Route: 065
  10. PARACETAMOL [Suspect]
     Active Substance: ACETAMINOPHEN
     Indication: COVID-19
     Dosage: UNK
     Route: 065
  11. ADRENALINE [Suspect]
     Active Substance: EPINEPHRINE
     Indication: BRADYCARDIA
     Dosage: 10 MG/H
     Route: 065
  12. IMIPENEM [Suspect]
     Active Substance: IMIPENEM
     Indication: PRODUCT USED FOR UNKNOWN INDICATION
     Dosage: UNK
     Route: 065
  13. VANCOMYCIN HYDROCHLORIDE. [Suspect]
     Active Substance: VANCOMYCIN HYDROCHLORIDE
     Indication: PRODUCT USED FOR UNKNOWN INDICATION
     Dosage: UNK
     Route: 065
  14. ZINC SULFATE. [Suspect]
     Active Substance: ZINC SULFATE
     Indication: COVID-19
     Dosage: UNK
     Route: 065

REACTIONS (2)
  - Off label use [Unknown]
  - Drug ineffective [Unknown]
